FAERS Safety Report 12849381 (Version 1)
Quarter: 2016Q4

REPORT INFORMATION
  Report Type: Spontaneous
  Country: DE (occurrence: DE)
  Receive Date: 20161014
  Receipt Date: 20161014
  Transmission Date: 20170207
  Serious: Yes (Other)
  Sender: FDA-Public Use
  Company Number: DE-MYLANLABS-2016M1043651

PATIENT

DRUGS (6)
  1. FOLIO                              /00349401/ [Concomitant]
     Active Substance: CYANOCOBALAMIN\FOLIC ACID
     Indication: PROPHYLAXIS OF NEURAL TUBE DEFECT
     Dosage: 0.4 MG, QD (0.4 [MG/D ])
     Route: 048
     Dates: start: 20150820, end: 20160515
  2. PROPESS [Concomitant]
     Active Substance: DINOPROSTONE
     Indication: LABOUR INDUCTION
     Dosage: 10 MG, BID (20 [MG/D ])
     Route: 067
     Dates: start: 20160512, end: 20160512
  3. PRESINOL [Concomitant]
     Active Substance: METHYLDOPA
     Indication: PRE-ECLAMPSIA
     Dosage: 125 MG, TID (375 [MG/D ]/ OR ^ONLY^ GESTATIONAL HYPERTENSION)
     Route: 048
     Dates: start: 20160112, end: 20160512
  4. PREDNISOLONE. [Suspect]
     Active Substance: PREDNISOLONE
     Indication: SPONDYLOARTHROPATHY
     Dosage: UNK (40 [MG/D ]/ SINCE 2005; HLA B27 ASSOCIATED ARTHRITIS, DOSAGE VARYING BETWEEN 2.5 AND 40 MG/D)
     Route: 048
     Dates: start: 20150820, end: 20160512
  5. PROTAPHANE [Concomitant]
     Active Substance: INSULIN HUMAN
     Indication: GESTATIONAL DIABETES
     Dosage: UNK (24 [IE/D ]/ DOSAGE VARYING BETWEEN 6 AND 24 IE DAILY (IN THE EVENING))
     Route: 058
     Dates: start: 20151216, end: 20160511
  6. THYRONAJOD [Concomitant]
     Active Substance: LEVOTHYROXINE SODIUM\POTASSIUM IODIDE
     Indication: THYROID HORMONE REPLACEMENT THERAPY
     Dosage: UNK (125 [?G/D ]/ SINCE 1999.)
     Route: 048
     Dates: start: 20150820, end: 20160512

REACTIONS (3)
  - Gestational diabetes [Recovered/Resolved]
  - Pre-eclampsia [Recovered/Resolved]
  - Exposure during pregnancy [Unknown]
